FAERS Safety Report 7659690-2 (Version None)
Quarter: 2011Q3

REPORT INFORMATION
  Report Type: 
  Country: None (occurrence: None)
  Receive Date: 20110805
  Receipt Date: 20110727
  Transmission Date: 20111222
  Serious: Yes (Hospitalization)
  Sender: FDA-Public Use
  Company Number: AT-JNJFOC-20101106034

PATIENT
  Age: 51 Year
  Sex: Female
  Weight: 79 kg

DRUGS (3)
  1. PREDNISOLONE [Concomitant]
     Indication: RHEUMATOID ARTHRITIS
     Route: 048
  2. METHOTREXATE [Concomitant]
     Indication: RHEUMATOID ARTHRITIS
     Route: 048
  3. GOLIMUMAB [Suspect]
     Indication: RHEUMATOID ARTHRITIS
     Dosage: THE SUBJECT RECEIVED 6 DOSES
     Route: 058
     Dates: start: 20100526, end: 20101018

REACTIONS (2)
  - LUDWIG ANGINA [None]
  - PHARYNGITIS [None]
